FAERS Safety Report 7109004-1 (Version None)
Quarter: 2010Q4

REPORT INFORMATION
  Report Type: 
  Country: None (occurrence: None)
  Receive Date: 20101117
  Receipt Date: 20101115
  Transmission Date: 20110411
  Serious: Yes (Other)
  Sender: FDA-Public Use
  Company Number: NL-TEVA-253619ISR

PATIENT

DRUGS (3)
  1. VALPROIC ACID [Suspect]
  2. PHENOBARBITAL [Interacting]
  3. POLIGLUSAM [Interacting]
     Indication: MEDICAL DIET

REACTIONS (2)
  - DRUG INTERACTION [None]
  - EPILEPSY [None]
